FAERS Safety Report 20184382 (Version 2)
Quarter: 2021Q4

REPORT INFORMATION
  Report Type: Spontaneous
  Country: US (occurrence: US)
  Receive Date: 20211214
  Receipt Date: 20211221
  Transmission Date: 20220303
  Serious: Yes (Other)
  Sender: FDA-Public Use
  Company Number: US-ALLERGAN-2137719US

PATIENT
  Sex: Female

DRUGS (3)
  1. CANASA [Suspect]
     Active Substance: MESALAMINE
     Indication: Colitis ulcerative
     Dosage: ACTUAL: ONE IN THE MORNING AND ONE IN THE EVENING (PRN INFLAMMATION)
     Dates: start: 1994
  2. CANASA [Suspect]
     Active Substance: MESALAMINE
     Indication: Crohn^s disease
  3. HUMIRA [Concomitant]
     Active Substance: ADALIMUMAB
     Indication: Colitis ulcerative
     Dosage: 1 DF, Q WEEK

REACTIONS (2)
  - Rectal fissure [Recovered/Resolved]
  - Colectomy total [Unknown]

NARRATIVE: CASE EVENT DATE: 19950101
